FAERS Safety Report 11065008 (Version 2)
Quarter: 2015Q2

REPORT INFORMATION
  Report Type: Spontaneous
  Country: US (occurrence: US)
  Receive Date: 20150424
  Receipt Date: 20150525
  Transmission Date: 20150821
  Serious: No
  Sender: FDA-Public Use
  Company Number: US-JNJFOC-20110900404

PATIENT
  Sex: Female

DRUGS (10)
  1. PRENATAL VITAMINS [Suspect]
     Active Substance: VITAMINS
     Indication: PREGNANCY
     Route: 065
  2. NIFEDIPINE. [Suspect]
     Active Substance: NIFEDIPINE
     Indication: PREMATURE LABOUR
     Route: 048
  3. PERIOGARD [Suspect]
     Active Substance: CHLORHEXIDINE GLUCONATE
     Indication: NONINFECTIVE GINGIVITIS
     Route: 048
     Dates: start: 20071009
  4. CYMBALTA [Suspect]
     Active Substance: DULOXETINE HYDROCHLORIDE
     Indication: DEPRESSION
     Route: 048
  5. CYMBALTA [Suspect]
     Active Substance: DULOXETINE HYDROCHLORIDE
     Indication: DEPRESSION
     Route: 048
     Dates: start: 20061030
  6. TYLENOL [Suspect]
     Active Substance: ACETAMINOPHEN
     Indication: HEADACHE
     Route: 065
     Dates: start: 200708
  7. MAGNESIUM [Suspect]
     Active Substance: MAGNESIUM
     Indication: PAIN PROPHYLAXIS
     Route: 065
     Dates: start: 200708
  8. TOPAMAX [Suspect]
     Active Substance: TOPIRAMATE
     Indication: MIGRAINE
     Route: 048
     Dates: start: 200610, end: 20070809
  9. PHENERGAN [Suspect]
     Active Substance: PROMETHAZINE HYDROCHLORIDE
     Indication: NAUSEA
     Route: 065
     Dates: start: 200708
  10. CORTICOSTEROIDS NOS [Suspect]
     Active Substance: UNSPECIFIED INGREDIENT
     Indication: PRODUCT USED FOR UNKNOWN INDICATION
     Route: 065

REACTIONS (2)
  - Emotional disorder [Unknown]
  - Exposure during pregnancy [Recovered/Resolved]
